FAERS Safety Report 10373919 (Version 1)
Quarter: 2014Q1

REPORT INFORMATION
  Report Type: Spontaneous
  Country: US (occurrence: None)
  Receive Date: 20140306
  Receipt Date: 20140306
  Transmission Date: 20141002
  Serious: Yes (Hospitalization, Other)
  Sender: FDA-Public Use
  Company Number: 163-21880-13011633

PATIENT
  Age: 57 Year
  Sex: Female

DRUGS (7)
  1. REVLIMID [Suspect]
     Indication: PLASMA CELL MYELOMA
     Dosage: 25 MG, 21 IN 21 D, PO
     Route: 048
     Dates: start: 20121101, end: 20130311
  2. DILAUDID (HYDROMORPHONE HYDROCHLORIDE) [Concomitant]
  3. METHADONE [Concomitant]
  4. NEURONTIN (GABAPENTIN) [Concomitant]
  5. PROZAC (FLUOXETINE HYDROCHLORIDE) [Concomitant]
  6. DECADRON (DEXAMETHASONE) [Concomitant]
  7. DEXAMETHASONE [Concomitant]

REACTIONS (5)
  - Pneumonia [None]
  - Staphylococcal sepsis [None]
  - Clostridium difficile colitis [None]
  - Deep vein thrombosis [None]
  - Hypertension [None]
